FAERS Safety Report 5658854-7 (Version None)
Quarter: 2008Q1

REPORT INFORMATION
  Report Type: 
  Country: None (occurrence: None)
  Receive Date: 20080310
  Receipt Date: 20070425
  Transmission Date: 20080703
  Serious: No
  Sender: FDA-Public Use
  Company Number: US-BAYER-200711283BCC

PATIENT
  Age: 76 Year
  Sex: Male
  Weight: 82 kg

DRUGS (4)
  1. ALEVE [Suspect]
     Indication: PAIN IN EXTREMITY
     Route: 048
     Dates: start: 20070424
  2. UNKNOWN ANTIBIOTIC [Concomitant]
  3. COUMADIN [Concomitant]
  4. WATER PILL [Concomitant]

REACTIONS (1)
  - PAIN IN EXTREMITY [None]
